FAERS Safety Report 8263808-0 (Version None)
Quarter: 2012Q2

REPORT INFORMATION
  Report Type: 
  Country: None (occurrence: None)
  Receive Date: 20120405
  Receipt Date: 20120329
  Transmission Date: 20120825
  Serious: Yes (Life-Threatening, Other)
  Sender: FDA-Public Use
  Company Number: US-ALLERGAN-1204545US

PATIENT
  Sex: Female

DRUGS (1)
  1. LATISSE [Suspect]
     Indication: GROWTH OF EYELASHES
     Dosage: 2 GTT, QHS
     Route: 061
     Dates: start: 20090101, end: 20100101

REACTIONS (8)
  - PAPILLOEDEMA [None]
  - THROMBOSIS [None]
  - ALTERED VISUAL DEPTH PERCEPTION [None]
  - ABNORMAL SENSATION IN EYE [None]
  - DRUG ADMINISTRATION ERROR [None]
  - VISUAL IMPAIRMENT [None]
  - VISUAL FIELD DEFECT [None]
  - OPTIC NERVE DISORDER [None]
